FAERS Safety Report 16555392 (Version 3)
Quarter: 2019Q3

REPORT INFORMATION
  Report Type: Report from Study
  Country: US (occurrence: US)
  Receive Date: 20190710
  Receipt Date: 20190827
  Transmission Date: 20191004
  Serious: Yes (Hospitalization)
  Sender: FDA-Public Use
  Company Number: US-ACTELION-A-NJ2018-179323

PATIENT
  Age: 69 Year
  Sex: Male

DRUGS (6)
  1. VELETRI [Suspect]
     Active Substance: EPOPROSTENOL
     Dosage: 9.25 NG/KG, PER MIN
     Route: 042
  2. VELETRI [Suspect]
     Active Substance: EPOPROSTENOL
     Dosage: 10.5 NG/KG, PER MIN
     Route: 042
  3. VELETRI [Suspect]
     Active Substance: EPOPROSTENOL
     Indication: PULMONARY ARTERIAL HYPERTENSION
     Dosage: 9.25 NG/KG, PER MIN
     Route: 042
     Dates: start: 20180913
  4. VELETRI [Suspect]
     Active Substance: EPOPROSTENOL
     Dosage: 9.5 NG/KG, PER MIN
     Route: 042
  5. OXYGEN. [Concomitant]
     Active Substance: OXYGEN
     Dosage: UNK
  6. OXYGEN. [Concomitant]
     Active Substance: OXYGEN
     Dosage: UNK

REACTIONS (13)
  - Hospitalisation [Unknown]
  - Viral infection [Recovering/Resolving]
  - Fluid retention [Unknown]
  - Nasopharyngitis [Unknown]
  - Oedema [Unknown]
  - Unevaluable event [Recovering/Resolving]
  - Pain in jaw [Not Recovered/Not Resolved]
  - Peripheral swelling [Recovering/Resolving]
  - Fatigue [Unknown]
  - Diarrhoea [Recovering/Resolving]
  - Increased appetite [Recovering/Resolving]
  - Dyspnoea [Unknown]
  - Dyspnoea exertional [Not Recovered/Not Resolved]

NARRATIVE: CASE EVENT DATE: 20181128
